FAERS Safety Report 12648432 (Version 2)
Quarter: 2016Q3

REPORT INFORMATION
  Report Type: Report from Study
  Country: US (occurrence: US)
  Receive Date: 20160812
  Receipt Date: 20160824
  Transmission Date: 20161109
  Serious: Yes (Other)
  Sender: FDA-Public Use
  Company Number: US-AMGEN-USASL2016102233

PATIENT
  Age: 66 Year
  Sex: Female

DRUGS (2)
  1. REPATHA [Suspect]
     Active Substance: EVOLOCUMAB
     Indication: BLOOD CHOLESTEROL ABNORMAL
     Dosage: 140 MG, Q2WK
     Route: 065
     Dates: start: 201607
  2. LASIX [Concomitant]
     Active Substance: FUROSEMIDE

REACTIONS (8)
  - Muscle spasms [Recovered/Resolved]
  - Dehydration [Unknown]
  - Vomiting [Unknown]
  - Renal pain [Unknown]
  - Diarrhoea [Unknown]
  - Renal impairment [Unknown]
  - Pain in extremity [Unknown]
  - Limb discomfort [Unknown]
